FAERS Safety Report 21567701 (Version 1)
Quarter: 2022Q4

REPORT INFORMATION
  Report Type: Report from Study
  Country: IN (occurrence: None)
  Receive Date: 20221108
  Receipt Date: 20221108
  Transmission Date: 20230112
  Serious: Yes (Death)
  Sender: FDA-Public Use
  Company Number: 2022A366994

PATIENT
  Age: 68 Year
  Sex: Female
  Weight: 51 kg

DRUGS (1)
  1. IMFINZI [Suspect]
     Active Substance: DURVALUMAB
     Indication: Non-small cell lung cancer
     Route: 042
     Dates: start: 20220617, end: 20220830

REACTIONS (1)
  - Death [Fatal]

NARRATIVE: CASE EVENT DATE: 20220918
